FAERS Safety Report 18677640 (Version 4)
Quarter: 2021Q1

REPORT INFORMATION
  Report Type: Spontaneous
  Country: CL (occurrence: CL)
  Receive Date: 20201229
  Receipt Date: 20210115
  Transmission Date: 20210419
  Serious: Yes (Other)
  Sender: FDA-Public Use
  Company Number: NVSC2020CL342583

PATIENT
  Age: 78 Year
  Sex: Female
  Weight: 55 kg

DRUGS (10)
  1. EXELON [Suspect]
     Active Substance: RIVASTIGMINE TARTRATE
     Dosage: 0.5 DF OF 13.3 MG QD PATCH 15 (CM2) , 27 MG RIVASTIGMINE BASE) AT NIGHT ON RIGHT FOREARM
     Route: 065
     Dates: start: 20201231
  2. ROZAVEL [Concomitant]
     Indication: PRODUCT USED FOR UNKNOWN INDICATION
     Dosage: 1 DF, QD
     Route: 048
     Dates: start: 20200218
  3. EXELON [Suspect]
     Active Substance: RIVASTIGMINE TARTRATE
     Dosage: 1 DF, QD (9.5 MG QD PATCH 10 (CM2), 18 MG RIVASTIGMINE BASE)
     Route: 065
     Dates: start: 20200627, end: 20201219
  4. DONEPEZIL. [Suspect]
     Active Substance: DONEPEZIL
     Indication: PRODUCT USED FOR UNKNOWN INDICATION
     Dosage: 10 MG
     Route: 065
  5. LORATADINE. [Concomitant]
     Active Substance: LORATADINE
     Indication: PRODUCT USED FOR UNKNOWN INDICATION
     Dosage: 1 DF, QD
     Route: 048
  6. BIOSULES [Concomitant]
     Indication: PRODUCT USED FOR UNKNOWN INDICATION
     Dosage: 1 DF, QD
     Route: 048
     Dates: start: 20201201
  7. EXELON [Suspect]
     Active Substance: RIVASTIGMINE TARTRATE
     Indication: VASCULAR DEMENTIA
     Dosage: 1 DF, QD (4.6 MG QD PATCH 5 (CM2), 9 MG RIVASTIGMINE BASE)
     Route: 065
     Dates: start: 20200507
  8. MEMANTINE. [Concomitant]
     Active Substance: MEMANTINE
     Indication: PRODUCT USED FOR UNKNOWN INDICATION
     Dosage: 1 DF, QD (FOR 3 MONTHS)
     Route: 048
     Dates: start: 20201222
  9. BETAPLEX [Concomitant]
     Indication: PRODUCT USED FOR UNKNOWN INDICATION
     Dosage: 1 DF (SINCE 3 YEARS)
     Route: 048
  10. EXELON [Suspect]
     Active Substance: RIVASTIGMINE TARTRATE
     Dosage: 0.5 DF OF 13.3 MG QD PATCH 15 (CM2) , 27 MG RIVASTIGMINE BASE) AT NIGHT ON LEFT FOREARM
     Route: 065
     Dates: start: 20210101

REACTIONS (10)
  - Rash [Not Recovered/Not Resolved]
  - Dermatitis [Recovered/Resolved]
  - Cerebrovascular accident [Unknown]
  - Application site pruritus [Unknown]
  - Dermatitis [Recovered/Resolved]
  - Vomiting [Unknown]
  - Discomfort [Unknown]
  - Feeling hot [Unknown]
  - Skin burning sensation [Not Recovered/Not Resolved]
  - Incorrect dose administered [Unknown]

NARRATIVE: CASE EVENT DATE: 20201216
